FAERS Safety Report 7457609-0 (Version None)
Quarter: 2011Q2

REPORT INFORMATION
  Report Type: 
  Country: None (occurrence: None)
  Receive Date: 20110402
  Receipt Date: 20110402
  Transmission Date: 20111010
  Serious: Yes (Life-Threatening, Other)
  Sender: FDA-Public Use
  Company Number: None

PATIENT
  Age: 44 Year
  Sex: Female
  Weight: 152.3 kg

DRUGS (2)
  1. SUCCINYLCHOLINE CHLORIDE [Suspect]
     Indication: ENDOTRACHEAL INTUBATION
     Dosage: 240 MG ONCE IV BOLUS
     Route: 040
     Dates: start: 20110428, end: 20110428
  2. SUCCINYLCHOLINE CHLORIDE [Suspect]

REACTIONS (1)
  - DRUG INEFFECTIVE [None]
